FAERS Safety Report 21852050 (Version 1)
Quarter: 2023Q1

REPORT INFORMATION
  Report Type: Report from Study
  Country: US (occurrence: US)
  Receive Date: 20230112
  Receipt Date: 20230112
  Transmission Date: 20230417
  Serious: No
  Sender: FDA-Public Use
  Company Number: US-ABBVIE-4232285

PATIENT
  Sex: Female

DRUGS (1)
  1. SKYRIZI [Suspect]
     Active Substance: RISANKIZUMAB-RZAA
     Indication: Urticaria
     Dosage: 150MG;?FREQUENCY TEXT: WEEK 0?TITRATION: 150 MG PEN SUBCUTANEOUSLY AT WEEK 0, WEEK4, AND EVERY 12...
     Route: 058
     Dates: start: 2022, end: 2022

REACTIONS (1)
  - Off label use [Unknown]

NARRATIVE: CASE EVENT DATE: 20220101
